FAERS Safety Report 8958442 (Version 1)
Quarter: 2012Q4

REPORT INFORMATION
  Report Type: Spontaneous
  Country: US (occurrence: None)
  Receive Date: 20121205
  Receipt Date: 20121205
  Transmission Date: 20130627
  Serious: Yes (Hospitalization, Other)
  Sender: FDA-Public Use
  Company Number: None

PATIENT
  Age: 76 Year
  Sex: Male
  Weight: 67.1 kg

DRUGS (1)
  1. FUROSEMIDE [Suspect]
     Dosage: 20 MG EVERY DAY PO
     Route: 048
     Dates: start: 20111116, end: 20120317

REACTIONS (3)
  - Hyperkalaemia [None]
  - Renal failure acute [None]
  - Acidosis [None]
